FAERS Safety Report 12917977 (Version 1)
Quarter: 2016Q4

REPORT INFORMATION
  Report Type: Spontaneous
  Country: US (occurrence: US)
  Receive Date: 20161107
  Receipt Date: 20161107
  Transmission Date: 20170207
  Serious: No
  Sender: FDA-Public Use
  Company Number: US-ALLERGAN-1663376US

PATIENT
  Sex: Male

DRUGS (1)
  1. RAPAFLO [Suspect]
     Active Substance: SILODOSIN
     Indication: URINARY RETENTION
     Route: 048

REACTIONS (5)
  - Headache [Unknown]
  - Weight decreased [Unknown]
  - Frequent bowel movements [Unknown]
  - Off label use [Unknown]
  - Diarrhoea [Unknown]
